FAERS Safety Report 7311785-9 (Version None)
Quarter: 2011Q1

REPORT INFORMATION
  Report Type: 
  Country: None (occurrence: None)
  Receive Date: 20110224
  Receipt Date: 20110219
  Transmission Date: 20110831
  Serious: Yes (Other)
  Sender: FDA-Public Use
  Company Number: AT-BAYER-201042518GPV

PATIENT
  Sex: Female
  Weight: 50 kg

DRUGS (1)
  1. YAZ [Suspect]
     Dosage: UNK
     Route: 048
     Dates: start: 20100817, end: 20101009

REACTIONS (5)
  - HYPERSENSITIVITY [None]
  - SKIN HYPERTROPHY [None]
  - ERYTHEMA [None]
  - ANGIOEDEMA [None]
  - BLISTER [None]
